FAERS Safety Report 25885427 (Version 2)
Quarter: 2025Q4

REPORT INFORMATION
  Report Type: Spontaneous
  Country: US (occurrence: US)
  Receive Date: 20251006
  Receipt Date: 20251010
  Transmission Date: 20260118
  Serious: No
  Sender: SANOFI AVENTIS
  Company Number: US-SANOFI-02674688

PATIENT
  Sex: Male

DRUGS (1)
  1. DUPIXENT [Suspect]
     Active Substance: DUPILUMAB
     Indication: Eczema
     Dosage: 300 MG, Q15D
     Dates: start: 2021

REACTIONS (5)
  - Eczema [Unknown]
  - Rebound effect [Unknown]
  - Pruritus [Unknown]
  - Product dose omission issue [Unknown]
  - Drug ineffective [Unknown]
